FAERS Safety Report 10268684 (Version 1)
Quarter: 2014Q2

REPORT INFORMATION
  Report Type: Spontaneous
  Country: US (occurrence: US)
  Receive Date: 20140630
  Receipt Date: 20140630
  Transmission Date: 20141212
  Serious: No
  Sender: FDA-Public Use
  Company Number: US-PFIZER INC-2014177551

PATIENT
  Sex: Female

DRUGS (2)
  1. NEURONTIN [Suspect]
     Indication: PAIN
     Dosage: UNK
  2. CYMBALTA [Concomitant]
     Indication: PAIN
     Dosage: UNK

REACTIONS (2)
  - Somnolence [Unknown]
  - Drug effect incomplete [Unknown]
